FAERS Safety Report 8556243-9 (Version None)
Quarter: 2012Q3

REPORT INFORMATION
  Report Type: 
  Country: None (occurrence: None)
  Receive Date: 20120801
  Receipt Date: 20120723
  Transmission Date: 20120928
  Serious: Yes (Other)
  Sender: FDA-Public Use
  Company Number: JP-VERTEX PHARMACEUTICALS INC.-AE-2012-010950

PATIENT
  Age: 46 Year
  Sex: Male

DRUGS (13)
  1. PEG-INTRON [Concomitant]
     Indication: HEPATITIS C
     Route: 058
     Dates: start: 20120119, end: 20120208
  2. REBETOL [Concomitant]
     Indication: HEPATITIS C
     Route: 048
     Dates: start: 20120119, end: 20120204
  3. REBETOL [Concomitant]
     Route: 048
     Dates: end: 20120627
  4. PEG-INTRON [Concomitant]
     Route: 058
     Dates: start: 20120209
  5. TELAVIC (TELAPREVIR) [Suspect]
     Indication: HEPATITIS C
     Route: 048
     Dates: start: 20120119, end: 20120405
  6. PEG-INTRON [Concomitant]
     Route: 058
     Dates: end: 20120329
  7. REBETOL [Concomitant]
     Route: 048
     Dates: start: 20120210
  8. PEG-INTRON [Concomitant]
     Route: 058
     Dates: end: 20120628
  9. ALLOPURINOL [Concomitant]
     Route: 048
  10. PEG-INTRON [Concomitant]
     Route: 058
     Dates: start: 20120405
  11. REBETOL [Concomitant]
     Route: 048
     Dates: start: 20120205, end: 20120209
  12. URSO 250 [Concomitant]
     Route: 048
     Dates: start: 20120628
  13. BEZATOL SR [Concomitant]
     Route: 048

REACTIONS (1)
  - WHITE BLOOD CELL COUNT DECREASED [None]
